FAERS Safety Report 10185593 (Version 2)
Quarter: 2014Q2

REPORT INFORMATION
  Report Type: Spontaneous
  Country: US (occurrence: US)
  Receive Date: 20140521
  Receipt Date: 20140530
  Transmission Date: 20141212
  Serious: Yes (Disabling, Other)
  Sender: FDA-Public Use
  Company Number: US-BAXTER-2014BAX023519

PATIENT
  Sex: Male

DRUGS (2)
  1. DIANEAL LOW CALCIUM [Suspect]
     Indication: PERITONEAL DIALYSIS
     Route: 033
     Dates: start: 2009
  2. DIANEAL LOW CALCIUM [Suspect]
     Indication: PERITONEAL DIALYSIS
     Route: 033
     Dates: start: 2009

REACTIONS (5)
  - Fall [Recovered/Resolved]
  - Mobility decreased [Recovering/Resolving]
  - Cervical spinal stenosis [Recovering/Resolving]
  - Blood pressure fluctuation [Recovering/Resolving]
  - Muscle spasms [Recovering/Resolving]
